FAERS Safety Report 6084137-X (Version None)
Quarter: 2009Q1

REPORT INFORMATION
  Report Type: 
  Country: None (occurrence: None)
  Receive Date: 20090219
  Receipt Date: 20090211
  Transmission Date: 20090719
  Serious: Yes (Other)
  Sender: FDA-Public Use
  Company Number: PL-AVENTIS-200911437GDDC

PATIENT
  Age: 61 Year
  Sex: Female
  Weight: 87 kg

DRUGS (1)
  1. DOCETAXEL [Suspect]
     Route: 042
     Dates: start: 20090110, end: 20090110

REACTIONS (4)
  - ANXIETY [None]
  - BLOOD PRESSURE INCREASED [None]
  - ERYTHEMA [None]
  - FEELING HOT [None]
